FAERS Safety Report 17497928 (Version 1)
Quarter: 2020Q1

REPORT INFORMATION
  Report Type: Spontaneous
  Country: JP (occurrence: JP)
  Receive Date: 20200304
  Receipt Date: 20200304
  Transmission Date: 20200409
  Serious: Yes (Other)
  Sender: FDA-Public Use
  Company Number: NVSJ2020JP002427

PATIENT
  Age: 52 Year
  Sex: Male

DRUGS (2)
  1. LOXOPROFEN [Suspect]
     Active Substance: LOXOPROFEN
     Indication: KAPOSI^S VARICELLIFORM ERUPTION
     Dosage: UNK
     Route: 065
  2. VALACICLOVIR [Suspect]
     Active Substance: VALACYCLOVIR HYDROCHLORIDE
     Indication: KAPOSI^S VARICELLIFORM ERUPTION
     Dosage: UNK
     Route: 048

REACTIONS (1)
  - Perirectal abscess [Recovering/Resolving]
